FAERS Safety Report 6206961-2 (Version None)
Quarter: 2009Q2

REPORT INFORMATION
  Report Type: 
  Country: None (occurrence: None)
  Receive Date: 20090528
  Receipt Date: 20090520
  Transmission Date: 20091009
  Serious: Yes (Hospitalization)
  Sender: FDA-Public Use
  Company Number: B0574937A

PATIENT
  Sex: Male

DRUGS (7)
  1. DEROXAT [Suspect]
     Indication: DEPRESSION
     Route: 048
  2. PREVISCAN [Suspect]
     Indication: BRAIN STEM STROKE
     Dosage: 20MG PER DAY
     Route: 048
     Dates: start: 20081106, end: 20081116
  3. METFORMIN HCL [Concomitant]
     Dosage: 1000MG THREE TIMES PER DAY
     Route: 048
  4. DIAMICRON [Concomitant]
     Dosage: 30MG TWICE PER DAY
     Route: 048
  5. CORDARONE [Concomitant]
     Dosage: 200MG PER DAY
     Route: 048
  6. FLUDEX [Concomitant]
     Indication: HYPERTENSION
     Dosage: 1.5MG PER DAY
     Route: 048
  7. PERINDOPRIL ERBUMINE [Concomitant]
     Indication: HYPERTENSION
     Dosage: 4MG PER DAY
     Route: 048

REACTIONS (7)
  - DIARRHOEA [None]
  - DRUG INTERACTION [None]
  - GASTRIC ULCER HAEMORRHAGE [None]
  - HAEMATEMESIS [None]
  - MELAENA [None]
  - OVERDOSE [None]
  - RECTAL HAEMORRHAGE [None]
